FAERS Safety Report 11680710 (Version 3)
Quarter: 2015Q4

REPORT INFORMATION
  Report Type: Spontaneous
  Country: US (occurrence: US)
  Receive Date: 20151027
  Receipt Date: 20151110
  Transmission Date: 20160304
  Serious: No
  Sender: FDA-Public Use
  Company Number: US-ELI_LILLY_AND_COMPANY-US201010005896

PATIENT
  Age: 66 Year
  Sex: Female

DRUGS (23)
  1. FORTEO [Suspect]
     Active Substance: TERIPARATIDE
     Dosage: 20 UG, DAILY (1/D)
  2. BENADRYL [Concomitant]
     Active Substance: DIPHENHYDRAMINE HYDROCHLORIDE
  3. LISINOPRIL. [Concomitant]
     Active Substance: LISINOPRIL
  4. FUROSEMIDE. [Concomitant]
     Active Substance: FUROSEMIDE
  5. HUMALOG [Concomitant]
     Active Substance: INSULIN LISPRO
  6. TYLENOL PM [Concomitant]
     Active Substance: ACETAMINOPHEN\DIPHENHYDRAMINE
  7. OMEPRAZOLE. [Concomitant]
     Active Substance: OMEPRAZOLE
  8. FORTEO [Suspect]
     Active Substance: TERIPARATIDE
     Dosage: 20 UG, DAILY (1/D)
  9. FORTEO [Suspect]
     Active Substance: TERIPARATIDE
     Dosage: 20 UG, QD
  10. FORTEO [Suspect]
     Active Substance: TERIPARATIDE
     Dosage: 20 UG, QD
  11. CALCIUM [Concomitant]
     Active Substance: CALCIUM
  12. CRESTOR [Concomitant]
     Active Substance: ROSUVASTATIN CALCIUM
     Dosage: UNK
  13. MULTIVITAMINS [Concomitant]
     Active Substance: VITAMINS
  14. SYNTHROID [Concomitant]
     Active Substance: LEVOTHYROXINE SODIUM
  15. PROVENTIL                               /USA/ [Concomitant]
  16. TOPROL XL [Concomitant]
     Active Substance: METOPROLOL SUCCINATE
  17. AMITRIPTYLINE [Concomitant]
     Active Substance: AMITRIPTYLINE
  18. LIDODERM [Concomitant]
     Active Substance: LIDOCAINE
  19. SALSALATE. [Concomitant]
     Active Substance: SALSALATE
  20. FORTEO [Suspect]
     Active Substance: TERIPARATIDE
     Indication: OSTEOPOROSIS
     Dosage: 20 UG, DAILY (1/D)
     Dates: start: 201006
  21. AMBIEN [Concomitant]
     Active Substance: ZOLPIDEM TARTRATE
  22. FERROUS SULFATE [Concomitant]
     Active Substance: FERROUS SULFATE\FERROUS SULFATE, DRIED
  23. LYRICA [Concomitant]
     Active Substance: PREGABALIN

REACTIONS (10)
  - Rotator cuff syndrome [Unknown]
  - Rib fracture [Unknown]
  - Arthralgia [Unknown]
  - Insomnia [Unknown]
  - Dizziness [Recovered/Resolved]
  - Renal disorder [Unknown]
  - Myalgia [Unknown]
  - Diarrhoea [Not Recovered/Not Resolved]
  - Sleep disorder [Unknown]
  - Fall [Unknown]

NARRATIVE: CASE EVENT DATE: 20101018
